FAERS Safety Report 19959447 (Version 4)
Quarter: 2021Q4

REPORT INFORMATION
  Report Type: Report from Study
  Country: GB (occurrence: GB)
  Receive Date: 20211015
  Receipt Date: 20211110
  Transmission Date: 20220303
  Serious: Yes (Death, Life-Threatening)
  Sender: FDA-Public Use
  Company Number: GB-PFIZER INC-202101365636

PATIENT
  Age: 61 Year
  Sex: Female

DRUGS (3)
  1. MYLOTARG [Suspect]
     Active Substance: GEMTUZUMAB OZOGAMICIN
     Dosage: UNK
     Dates: start: 20210914, end: 20210914
  2. CYTARABINE [Suspect]
     Active Substance: CYTARABINE
     Dosage: UNK
     Dates: start: 20210914, end: 20210924
  3. DAUNORUBICIN [Suspect]
     Active Substance: DAUNORUBICIN
     Dosage: UNK
     Dates: start: 20210914, end: 20210918

REACTIONS (4)
  - Ileus [Fatal]
  - Cardiac arrest [Fatal]
  - Brain hypoxia [Fatal]
  - Sepsis [Fatal]

NARRATIVE: CASE EVENT DATE: 20211004
